FAERS Safety Report 9291982 (Version 3)
Quarter: 2013Q3

REPORT INFORMATION
  Report Type: Spontaneous
  Country: US (occurrence: US)
  Receive Date: 20130516
  Receipt Date: 20130716
  Transmission Date: 20140515
  Serious: No
  Sender: FDA-Public Use
  Company Number: US-PFIZER INC-2013149734

PATIENT
  Age: 54 Year
  Sex: Male

DRUGS (1)
  1. LYRICA [Suspect]
     Dosage: 50 MG, TWO CAPSULES AM AND 3 CAPSULES PM
     Route: 048

REACTIONS (1)
  - Neuropathy peripheral [Unknown]
